FAERS Safety Report 7229886-2 (Version None)
Quarter: 2011Q1

REPORT INFORMATION
  Report Type: 
  Country: None (occurrence: None)
  Receive Date: 20110117
  Receipt Date: 20110112
  Transmission Date: 20110831
  Serious: Yes (Death, Hospitalization)
  Sender: FDA-Public Use
  Company Number: US-GILEAD-2010-0032422

PATIENT
  Age: 46 Year
  Sex: Male

DRUGS (14)
  1. DARUNAVIR [Concomitant]
     Indication: HIV INFECTION
  2. TRUVADA [Suspect]
     Dates: start: 20100917, end: 20100921
  3. VANCOMYCIN [Concomitant]
  4. DARUNAVIR [Concomitant]
  5. CEFEPIME [Concomitant]
  6. TRUVADA [Suspect]
     Indication: HIV INFECTION
     Dates: end: 20100920
  7. CEFTRIAXONE [Concomitant]
  8. CONTRAST MEDIA [Concomitant]
  9. VALGANCICLOVIR HCL [Concomitant]
  10. LEVOFLOXACIN [Concomitant]
  11. NORVIR [Concomitant]
  12. CHEMOTHERAPY [Concomitant]
  13. NORVIR [Concomitant]
     Indication: HIV INFECTION
  14. GENTAMICIN [Concomitant]

REACTIONS (16)
  - PANCYTOPENIA [None]
  - HYPOTENSION [None]
  - DEATH [None]
  - SYSTEMIC INFLAMMATORY RESPONSE SYNDROME [None]
  - BLOOD MAGNESIUM DECREASED [None]
  - RENAL FAILURE ACUTE [None]
  - SERRATIA BACTERAEMIA [None]
  - CONFUSIONAL STATE [None]
  - MEDICATION ERROR [None]
  - FLUID OVERLOAD [None]
  - BLOOD BICARBONATE DECREASED [None]
  - HEPATOSPLENOMEGALY [None]
  - PNEUMONIA [None]
  - HYPONATRAEMIA [None]
  - ANAEMIA [None]
  - RENAL TUBULAR NECROSIS [None]
